FAERS Safety Report 9587734 (Version 1)
Quarter: 2013Q4

REPORT INFORMATION
  Report Type: Spontaneous
  Country: US (occurrence: US)
  Receive Date: 20131003
  Receipt Date: 20131003
  Transmission Date: 20140711
  Serious: Yes (Death)
  Sender: FDA-Public Use
  Company Number: US-COVIDIEN/TYCO HEALTHCARE/MALLINCKRODT-T201300833

PATIENT
  Age: 24 Year
  Sex: Female
  Weight: 90.7 kg

DRUGS (6)
  1. HYDROMORPHONE [Suspect]
     Indication: FIBROMYALGIA
     Dosage: 1 TAB Q 4 HR
     Route: 048
     Dates: start: 20130124, end: 201302
  2. LYRICA [Concomitant]
     Indication: FIBROMYALGIA
     Dosage: 150 MG TID
  3. LEXAPRO [Concomitant]
     Indication: DEPRESSION
     Dosage: 20 MG QD
  4. SPRINTEC [Concomitant]
     Indication: CONTRACEPTION
     Dosage: 1 QD
  5. FIORICET [Concomitant]
     Indication: MIGRAINE
     Dosage: 1 TAB Q6 PRN
  6. OXYCODONE [Concomitant]
     Indication: FIBROMYALGIA
     Dosage: 30 MG, 2 TABS Q 4-6 HOURS
     Dates: end: 2013

REACTIONS (2)
  - Pain [Not Recovered/Not Resolved]
  - Drug ineffective [Unknown]
